FAERS Safety Report 10427976 (Version 3)
Quarter: 2014Q4

REPORT INFORMATION
  Report Type: Report from Study
  Country: US (occurrence: US)
  Receive Date: 20140903
  Receipt Date: 20141008
  Transmission Date: 20150528
  Serious: Yes (Other)
  Sender: FDA-Public Use
  Company Number: US-BAYER-2014-059513

PATIENT
  Age: 42 Year
  Sex: Male

DRUGS (6)
  1. ADEMPAS [Suspect]
     Active Substance: RIOCIGUAT
     Indication: PULMONARY ARTERIAL HYPERTENSION
     Dosage: 1.5 MG, TID
     Route: 048
     Dates: start: 20140407
  2. FUROSEMIDE [FUROSEMIDE] [Concomitant]
  3. AZATHIOPRINE. [Concomitant]
     Active Substance: AZATHIOPRINE
  4. VITAMIN D3 [Concomitant]
     Active Substance: CHOLECALCIFEROL
  5. ADEMPAS [Suspect]
     Active Substance: RIOCIGUAT
     Indication: PULMONARY ARTERIAL HYPERTENSION
     Dosage: 2.5 MG, TID
     Route: 048
     Dates: start: 20140311
  6. WARFARIN [Concomitant]
     Active Substance: WARFARIN

REACTIONS (8)
  - Fatigue [None]
  - Oedema peripheral [None]
  - Loss of consciousness [None]
  - Fluid retention [None]
  - Constipation [None]
  - Skin ulcer [None]
  - Decreased appetite [None]
  - Somnolence [None]

NARRATIVE: CASE EVENT DATE: 20140414
